FAERS Safety Report 6221544-6 (Version None)
Quarter: 2009Q2

REPORT INFORMATION
  Report Type: 
  Country: None (occurrence: None)
  Receive Date: 20090610
  Receipt Date: 20090527
  Transmission Date: 20091009
  Serious: Yes (Other)
  Sender: FDA-Public Use
  Company Number: AU-MYLANLABS-2009S1009429

PATIENT
  Age: 58 Year
  Sex: Male

DRUGS (1)
  1. DIABEX XR [Suspect]
     Indication: DIABETES MELLITUS
     Route: 048
     Dates: start: 20060817, end: 20061030

REACTIONS (3)
  - HAEMANGIOMA OF LIVER [None]
  - HEPATIC STEATOSIS [None]
  - HEPATITIS [None]
